FAERS Safety Report 5106243-6 (Version None)
Quarter: 2006Q3

REPORT INFORMATION
  Report Type: 
  Country: None (occurrence: None)
  Receive Date: 20060912
  Receipt Date: 20060830
  Transmission Date: 20061208
  Serious: Yes (Disabling)
  Sender: FDA-Public Use
  Company Number: 2006092822

PATIENT
  Age: 83 Year
  Sex: Female
  Weight: 55 kg

DRUGS (16)
  1. NEURONTIN [Suspect]
     Indication: NEURALGIA
     Dosage: 900 MG (300 MG, 3 IN 1 D) ORAL
     Route: 048
     Dates: start: 20051209
  2. DARBEPOETIN ALFA [Concomitant]
  3. ASTRIX (ACETYLSALICYLIC ACID) [Concomitant]
  4. METOPROLOL TARTRATE [Concomitant]
  5. COLOXYL WITH SENNA (DOCUSATE SODIUM, SENNOSIDE A+B) [Concomitant]
  6. ENDEP [Concomitant]
  7. IMDUR [Concomitant]
  8. LACTULOSE [Concomitant]
  9. LANSOPRAZOLE [Concomitant]
  10. LIPITOR [Concomitant]
  11. LOPID [Concomitant]
  12. MADOPAR (BENSERAZIDE HYDROCHLORIDE, LEVODOPA) [Concomitant]
  13. MADOPAR H BS (BENSERAZIDE HYDROCHLORIDE, LEVODOPA) [Concomitant]
  14. GLYCERYL TRINITRATE [Concomitant]
  15. PARACETAMOL [Concomitant]
  16. RAMIPRIL [Concomitant]

REACTIONS (5)
  - ACTIVITIES OF DAILY LIVING IMPAIRED [None]
  - COGNITIVE DISORDER [None]
  - CONFUSIONAL STATE [None]
  - MEMORY IMPAIRMENT [None]
  - THINKING ABNORMAL [None]
